FAERS Safety Report 6652763-2 (Version None)
Quarter: 2010Q1

REPORT INFORMATION
  Report Type: 
  Country: None (occurrence: None)
  Receive Date: 20100326
  Receipt Date: 20100317
  Transmission Date: 20100710
  Serious: Yes (Death, Hospitalization)
  Sender: FDA-Public Use
  Company Number: GXKR2010DK03195

PATIENT

DRUGS (8)
  1. SIMVASTATIN 1A FARMA (NGX) [Suspect]
     Indication: HYPERLIPIDAEMIA
     Dosage: 40 MG, QD
     Route: 048
     Dates: end: 20081028
  2. OXYCONTIN [Concomitant]
     Dosage: 10 MILLIGRAM(S)
     Route: 048
  3. PAMOL [Concomitant]
     Dosage: 1000 MG, QID
     Route: 048
  4. DIMITONE [Concomitant]
     Dosage: 0.5 DF, QD
     Route: 048
  5. MAGNYL ^SAD^ [Concomitant]
     Dosage: 0.5 MG, QD
     Route: 048
  6. PLAVIX [Concomitant]
     Dosage: 75 MILLIGRAM(S)
     Route: 048
  7. TRIATEC [Concomitant]
     Dosage: 2.5 MILLIGRAM(S)
     Route: 048
  8. ZARATOR ^PFIZER^ [Suspect]
     Indication: HYPERLIPIDAEMIA
     Route: 048
     Dates: start: 20020101, end: 20080828

REACTIONS (2)
  - MULTI-ORGAN FAILURE [None]
  - PANCREATITIS [None]
